FAERS Safety Report 19814819 (Version 1)
Quarter: 2021Q3

REPORT INFORMATION
  Report Type: Spontaneous
  Country: CN (occurrence: CN)
  Receive Date: 20210910
  Receipt Date: 20210910
  Transmission Date: 20211014
  Serious: Yes (Disabling)
  Sender: FDA-Public Use
  Company Number: CN-PFIZER INC-202101128170

PATIENT
  Age: 55 Year
  Sex: Female
  Weight: 52 kg

DRUGS (1)
  1. MEDROL [Suspect]
     Active Substance: METHYLPREDNISOLONE
     Indication: PULMONARY SARCOIDOSIS
     Dosage: 20.000 MG, 1X/DAY
     Route: 048
     Dates: start: 20210813, end: 20210820

REACTIONS (2)
  - Weight increased [Unknown]
  - Transaminases increased [Recovering/Resolving]

NARRATIVE: CASE EVENT DATE: 20210819
